FAERS Safety Report 8494095-6 (Version None)
Quarter: 2012Q3

REPORT INFORMATION
  Report Type: 
  Country: None (occurrence: None)
  Receive Date: 20120702
  Receipt Date: 20120702
  Transmission Date: 20120928
  Serious: No
  Sender: FDA-Public Use
  Company Number: None

PATIENT
  Sex: Female
  Weight: 63.5036 kg

DRUGS (1)
  1. EXCEDRIN (EXTRA STGH) [Suspect]
     Indication: SINUS HEADACHE
     Dosage: 2 TABLETS A DAY
     Dates: start: 20110501, end: 20120101

REACTIONS (3)
  - PRODUCT QUALITY ISSUE [None]
  - PRODUCT FORMULATION ISSUE [None]
  - NECK PAIN [None]
